FAERS Safety Report 23056330 (Version 1)
Quarter: 2023Q4

REPORT INFORMATION
  Report Type: Spontaneous
  Country: US (occurrence: US)
  Receive Date: 20231011
  Receipt Date: 20231011
  Transmission Date: 20240110
  Serious: Yes (Life-Threatening, Hospitalization)
  Sender: FDA-Public Use
  Company Number: US-TEVA-2023-US-2933092

PATIENT
  Sex: Male

DRUGS (1)
  1. BUPRENORPHINE [Suspect]
     Active Substance: BUPRENORPHINE
     Indication: Withdrawal syndrome
     Dosage: DOSE- MORE THAN 1MG WAS ADMINISTERED BY THE MOTHER
     Route: 064

REACTIONS (4)
  - Drug withdrawal syndrome neonatal [Recovered/Resolved]
  - Seizure [Recovered/Resolved]
  - Apnoea [Recovered/Resolved]
  - Foetal exposure during pregnancy [Unknown]
